FAERS Safety Report 11004100 (Version 1)
Quarter: 2015Q2

REPORT INFORMATION
  Report Type: Spontaneous
  Country: US (occurrence: US)
  Receive Date: 20150409
  Receipt Date: 20150409
  Transmission Date: 20150821
  Serious: Yes (Life-Threatening, Congenital Anomaly, Other)
  Sender: FDA-Public Use
  Company Number: US-ELI_LILLY_AND_COMPANY-US201504001595

PATIENT

DRUGS (3)
  1. CELEXA [Concomitant]
     Active Substance: CITALOPRAM HYDROBROMIDE
  2. LEXAPRO [Concomitant]
     Active Substance: ESCITALOPRAM OXALATE
     Indication: DEPRESSION
  3. SARAFEM [Suspect]
     Active Substance: FLUOXETINE HYDROCHLORIDE
     Indication: DEPRESSION
     Route: 064

REACTIONS (11)
  - Heterotaxia [Unknown]
  - Osteomyelitis [Unknown]
  - Intestinal malrotation [Unknown]
  - Pulmonary hypoplasia [Unknown]
  - Pulmonary valve stenosis [Unknown]
  - Atrioventricular septal defect [Unknown]
  - Post procedural sepsis [Unknown]
  - Foetal exposure during pregnancy [Recovered/Resolved]
  - Right aortic arch [Unknown]
  - Respiratory arrest [Recovered/Resolved]
  - Double outlet right ventricle [Unknown]
